FAERS Safety Report 9619813 (Version 2)
Quarter: 2013Q4

REPORT INFORMATION
  Report Type: Spontaneous
  Country: BR (occurrence: BR)
  Receive Date: 20131014
  Receipt Date: 20131014
  Transmission Date: 20140711
  Serious: Yes (Death, Hospitalization, Other)
  Sender: FDA-Public Use
  Company Number: BR-SA-RENA-1002070

PATIENT
  Age: 82 Year
  Sex: Male

DRUGS (1)
  1. RENAGEL [Suspect]
     Indication: PRODUCT USED FOR UNKNOWN INDICATION
     Dosage: 3 DF, QD
     Route: 065
     Dates: start: 2013

REACTIONS (4)
  - Renal failure [Unknown]
  - Death [Fatal]
  - Abdominal pain [Unknown]
  - Hypotension [Unknown]
